FAERS Safety Report 12490814 (Version 1)
Quarter: 2016Q2

REPORT INFORMATION
  Report Type: Report from Study
  Country: CN (occurrence: CN)
  Receive Date: 20160622
  Receipt Date: 20160622
  Transmission Date: 20160815
  Serious: Yes (Other)
  Sender: FDA-Public Use
  Company Number: CN-ROCHE-1777354

PATIENT

DRUGS (3)
  1. RIBAVIRIN. [Suspect]
     Active Substance: RIBAVIRIN
     Indication: CHRONIC HEPATITIS C
     Dosage: 800 MG/D TO PATIENTS WITH BODY WEIGHT {/= 65 KG, 1000 MG/D TO THOSE WITH BODY WEIGHT OF 65 - 75 KG,
     Route: 065
  2. PEGINTERFERON ALFA-2B [Suspect]
     Active Substance: PEGINTERFERON ALFA-2B
     Indication: CHRONIC HEPATITIS C
     Dosage: COULD BE REDUCED TO 50 MCG IF PATIENT COULD NOT TOLERATE FULL DOSE
     Route: 058
  3. PEG-INTERFERON ALFA 2A [Suspect]
     Active Substance: PEGINTERFERON ALFA-2A
     Indication: CHRONIC HEPATITIS C
     Dosage: COULD BE REDUCED TO 135 MCG IF PATIENT COULD NOT TOLERATE FULL DOSE
     Route: 058

REACTIONS (9)
  - Inferiority complex [Unknown]
  - Weight decreased [Unknown]
  - Depression [Unknown]
  - Interstitial lung disease [Unknown]
  - Thyroid disorder [Unknown]
  - Feeling of despair [Unknown]
  - Aplastic anaemia [Unknown]
  - Obsessive-compulsive disorder [Unknown]
  - Somatic symptom disorder [Unknown]
